FAERS Safety Report 4496430-2 (Version None)
Quarter: 2004Q4

REPORT INFORMATION
  Report Type: 
  Country: None (occurrence: None)
  Receive Date: 20041108
  Receipt Date: 20041108
  Transmission Date: 20050328
  Serious: No
  Sender: FDA-Public Use
  Company Number: None

PATIENT
  Age: 48 Year
  Sex: Female
  Weight: 94.3482 kg

DRUGS (4)
  1. LIPITOR [Suspect]
     Indication: HYPERCHOLESTEROLAEMIA
     Dosage: 40MG DAY ORAL
     Route: 048
     Dates: start: 19990101, end: 20040820
  2. CRESTOR [Suspect]
     Dosage: 10MG DAY ORAL
     Route: 048
     Dates: start: 20041004, end: 20041105
  3. IBUPROFEN [Concomitant]
  4. VIOXX [Concomitant]

REACTIONS (1)
  - FIBROMYALGIA [None]
